FAERS Safety Report 5693063-7 (Version None)
Quarter: 2008Q2

REPORT INFORMATION
  Report Type: 
  Country: None (occurrence: None)
  Receive Date: 20080402
  Receipt Date: 20080402
  Transmission Date: 20081010
  Serious: Yes (Hospitalization)
  Sender: FDA-Public Use
  Company Number: None

PATIENT
  Sex: Female
  Weight: 62.0521 kg

DRUGS (3)
  1. TAXOTERE [Suspect]
     Dosage: 126 MG ONCE IV
     Route: 042
     Dates: start: 20080312
  2. TAXOTERE [Suspect]
  3. CARBOPLATIN [Suspect]
     Dosage: 320 MG IV
     Route: 042
     Dates: start: 20080312

REACTIONS (5)
  - HYPERHIDROSIS [None]
  - INFUSION RELATED REACTION [None]
  - MALAISE [None]
  - PALPITATIONS [None]
  - VOMITING [None]
